FAERS Safety Report 4970469-2 (Version None)
Quarter: 2006Q2

REPORT INFORMATION
  Report Type: 
  Country: None (occurrence: None)
  Receive Date: 20060411
  Receipt Date: 20060411
  Transmission Date: 20061013
  Serious: Yes (Other)
  Sender: FDA-Public Use
  Company Number: None

PATIENT
  Age: 14 Year
  Sex: Female
  Weight: 76 kg

DRUGS (1)
  1. TOPOSAR [Suspect]
     Indication: HODGKIN'S DISEASE
     Dosage: 185MG   DAILY X 3 DAYS   IV
     Route: 042
     Dates: start: 20060403, end: 20060405

REACTIONS (2)
  - ANAPHYLACTIC REACTION [None]
  - INFUSION RELATED REACTION [None]
